FAERS Safety Report 4483845-1 (Version None)
Quarter: 2004Q4

REPORT INFORMATION
  Report Type: 
  Country: None (occurrence: None)
  Receive Date: 20041021
  Receipt Date: 20041005
  Transmission Date: 20050328
  Serious: Yes (Hospitalization)
  Sender: FDA-Public Use
  Company Number: A03200402524

PATIENT
  Age: 69 Year
  Sex: Male
  Weight: 73.0291 kg

DRUGS (17)
  1. ELOXATIN            OXALAPLATIN - SOLUTION [Suspect]
     Indication: COLON CANCER STAGE III
     Dosage: 167 MG Q2W, INTRAVENOUS NOS
     Route: 042
     Dates: start: 20040714, end: 20040714
  2. FLUOROURACIL [Concomitant]
  3. LEUCOVORIN [Concomitant]
  4. ATENOLOL [Concomitant]
  5. LOVASTATIN [Concomitant]
  6. LISONOPRIIL [Concomitant]
  7. WARFARIN SODIUM [Concomitant]
  8. CHLORPROMAZINE HYDROCHLORIDE [Concomitant]
  9. GLYBURIDE [Concomitant]
  10. MEGESTROL ACETATE [Concomitant]
  11. EPOETIN ALFA [Concomitant]
  12. LORAZEPAM [Concomitant]
  13. OPIUM TINCTURE [Concomitant]
  14. DIPHENOXYLATE W/ATROPINE [Concomitant]
  15. METFORMIN HCL [Concomitant]
  16. PROMETHAZINE [Concomitant]
  17. RANITIDINE [Concomitant]

REACTIONS (14)
  - APNOEA [None]
  - BLOOD GLUCOSE INCREASED [None]
  - BLOOD POTASSIUM INCREASED [None]
  - BLOOD SODIUM DECREASED [None]
  - BLOOD UREA INCREASED [None]
  - COMPUTERISED TOMOGRAM ABNORMAL [None]
  - DEHYDRATION [None]
  - DIAPHRAGMATIC DISORDER [None]
  - DIARRHOEA [None]
  - HICCUPS [None]
  - MUSCLE SPASMS [None]
  - PCO2 DECREASED [None]
  - PLEURAL EFFUSION [None]
  - SYNCOPE [None]
